FAERS Safety Report 8809869 (Version 1)
Quarter: 2012Q4

REPORT INFORMATION
  Report Type: 
  Country: SG (occurrence: SG)
  Receive Date: 20120926
  Receipt Date: 20120926
  Transmission Date: 20130627
  Serious: Yes (Life-Threatening)
  Sender: FDA-Public Use
  Company Number: SG-EISAI INC-E2020-11414-SPO-SG

PATIENT
  Age: 79 Year
  Sex: Female

DRUGS (2)
  1. ARICEPT [Suspect]
     Indication: ALZHEIMER^S DISEASE
     Route: 048
     Dates: end: 201209
  2. ARICEPT [Suspect]
     Dosage: Unknown
     Route: 048
     Dates: start: 201209

REACTIONS (1)
  - Cardiac arrest [Recovered/Resolved]
